FAERS Safety Report 16386335 (Version 1)
Quarter: 2019Q2

REPORT INFORMATION
  Report Type: Report from Study
  Country: KW (occurrence: KW)
  Receive Date: 20190603
  Receipt Date: 20190603
  Transmission Date: 20190711
  Serious: Yes (Death, Other)
  Sender: FDA-Public Use
  Company Number: KW-INCYTE CORPORATION-2019IN005264

PATIENT

DRUGS (1)
  1. JAKAVI [Suspect]
     Active Substance: RUXOLITINIB
     Indication: MYELOFIBROSIS
     Dosage: 20 MG, BID
     Route: 048
     Dates: start: 20180807

REACTIONS (5)
  - Death [Fatal]
  - Vomiting [Unknown]
  - Decreased appetite [Unknown]
  - Gait inability [Unknown]
  - Aphasia [Unknown]

NARRATIVE: CASE EVENT DATE: 201903
